FAERS Safety Report 16789471 (Version 2)
Quarter: 2020Q2

REPORT INFORMATION
  Report Type: Report from Study
  Country: GB (occurrence: GB)
  Receive Date: 20190910
  Receipt Date: 20200429
  Transmission Date: 20200713
  Serious: Yes (Other)
  Sender: FDA-Public Use
  Company Number: GB-SAMSUNG BIOEPIS-SB-2018-15204

PATIENT
  Age: 46 Year
  Sex: Male

DRUGS (1)
  1. BENEPALI [Suspect]
     Active Substance: ETANERCEPT
     Indication: ANKYLOSING SPONDYLITIS
     Route: 058
     Dates: start: 20160923

REACTIONS (8)
  - Suicidal ideation [Unknown]
  - Ill-defined disorder [Unknown]
  - Brain neoplasm [Unknown]
  - Migraine [Unknown]
  - Pain [Unknown]
  - Intentional self-injury [Not Recovered/Not Resolved]
  - Bedridden [Unknown]
  - Back pain [Unknown]
